FAERS Safety Report 6442107-3 (Version None)
Quarter: 2009Q4

REPORT INFORMATION
  Report Type: 
  Country: None (occurrence: None)
  Receive Date: 20091116
  Receipt Date: 20091103
  Transmission Date: 20100525
  Serious: Yes (Other)
  Sender: FDA-Public Use
  Company Number: PHEH2008US04276

PATIENT
  Sex: Female
  Weight: 68.481 kg

DRUGS (3)
  1. AREDIA [Suspect]
  2. ZOMETA [Suspect]
  3. ANTICOAGULANTS [Concomitant]
     Dosage: UNK

REACTIONS (26)
  - ANHEDONIA [None]
  - ANXIETY [None]
  - BONE OPERATION [None]
  - CARDIOVASCULAR DISORDER [None]
  - CONVULSION [None]
  - DEBRIDEMENT [None]
  - DISABILITY [None]
  - DYSKINESIA [None]
  - EMBOLISM [None]
  - FATIGUE [None]
  - FRACTURE NONUNION [None]
  - GASTROOESOPHAGEAL REFLUX DISEASE [None]
  - INJURY [None]
  - JAW FRACTURE [None]
  - MALAISE [None]
  - OSTEITIS [None]
  - OSTEOMYELITIS [None]
  - OSTEONECROSIS [None]
  - PAIN [None]
  - PAIN IN JAW [None]
  - PATHOLOGICAL FRACTURE [None]
  - POST PROCEDURAL FISTULA [None]
  - QUADRIPLEGIA [None]
  - TOOTH EXTRACTION [None]
  - TYPE 2 DIABETES MELLITUS [None]
  - VULVOVAGINAL CANDIDIASIS [None]
